FAERS Safety Report 12703728 (Version 3)
Quarter: 2016Q4

REPORT INFORMATION
  Report Type: Spontaneous
  Country: US (occurrence: US)
  Receive Date: 20160831
  Receipt Date: 20161229
  Transmission Date: 20170207
  Serious: Yes (Hospitalization, Other)
  Sender: FDA-Public Use
  Company Number: US-INCYTE CORPORATION-2016IN005285

PATIENT
  Sex: Female

DRUGS (2)
  1. JAKAFI [Suspect]
     Active Substance: RUXOLITINIB
     Dosage: 15 MG, UNK
     Route: 048
     Dates: start: 20161222
  2. JAKAFI [Suspect]
     Active Substance: RUXOLITINIB
     Indication: MYELOFIBROSIS
     Dosage: 10 MG, BID
     Route: 048
     Dates: start: 20131001

REACTIONS (7)
  - Drug dose omission [Unknown]
  - Malaise [Unknown]
  - Hepatic failure [Unknown]
  - Bladder pain [Unknown]
  - General physical health deterioration [Unknown]
  - Fluid retention [Unknown]
  - Spinal disorder [Unknown]
